FAERS Safety Report 5405542-8 (Version None)
Quarter: 2007Q3

REPORT INFORMATION
  Report Type: 
  Country: None (occurrence: None)
  Receive Date: 20070803
  Receipt Date: 20070724
  Transmission Date: 20080115
  Serious: Yes (Other)
  Sender: FDA-Public Use
  Company Number: US-PFIZER INC-2007062566

PATIENT
  Sex: Male
  Weight: 80 kg

DRUGS (5)
  1. LIPITOR [Suspect]
     Indication: BLOOD CHOLESTEROL INCREASED
  2. BETA BLOCKING AGENTS [Suspect]
  3. ANAESTHETICS [Suspect]
     Indication: ANGIOGRAM
     Dates: start: 20070720, end: 20070720
  4. PROSCAR [Concomitant]
  5. MICARDIS [Concomitant]

REACTIONS (9)
  - ARTERIAL OCCLUSIVE DISEASE [None]
  - ASTHENIA [None]
  - BLOOD CHOLESTEROL INCREASED [None]
  - DYSGEUSIA [None]
  - FEELING ABNORMAL [None]
  - LOW DENSITY LIPOPROTEIN INCREASED [None]
  - NAUSEA [None]
  - PAIN [None]
  - VISION BLURRED [None]
